FAERS Safety Report 23654850 (Version 1)
Quarter: 2024Q1

REPORT INFORMATION
  Report Type: Spontaneous
  Country: US (occurrence: US)
  Receive Date: 20240320
  Receipt Date: 20240320
  Transmission Date: 20240410
  Serious: Yes (Hospitalization)
  Sender: FDA-Public Use
  Company Number: US-002147023-NVSC2024US057138

PATIENT
  Sex: Male

DRUGS (3)
  1. OCTREOTIDE [Interacting]
     Active Substance: OCTREOTIDE\OCTREOTIDE ACETATE
     Indication: Lymphatic fistula
     Dosage: 100 MG, TID, 3 TIMES A DAY
     Route: 058
  2. OCTREOTIDE [Interacting]
     Active Substance: OCTREOTIDE\OCTREOTIDE ACETATE
  3. OCTREOTIDE [Interacting]
     Active Substance: OCTREOTIDE\OCTREOTIDE ACETATE

REACTIONS (2)
  - Hypocalcaemia [Unknown]
  - Product use in unapproved indication [Unknown]
